FAERS Safety Report 7901193-1 (Version None)
Quarter: 2011Q4

REPORT INFORMATION
  Report Type: 
  Country: None (occurrence: None)
  Receive Date: 20111108
  Receipt Date: 20111103
  Transmission Date: 20120403
  Serious: No
  Sender: FDA-Public Use
  Company Number: US-TEVA-308044USA

PATIENT
  Sex: Female
  Weight: 56.75 kg

DRUGS (2)
  1. ZOLOFT [Concomitant]
     Indication: OBSESSIVE-COMPULSIVE DISORDER
     Dosage: 100 MILLIGRAM;
     Route: 048
     Dates: start: 20090101
  2. PLAN B ONE-STEP [Suspect]
     Indication: POST COITAL CONTRACEPTION
     Dosage: 1.5 MILLIGRAM;
     Route: 048
     Dates: start: 20111028, end: 20111028

REACTIONS (2)
  - RASH GENERALISED [None]
  - PRURITUS GENERALISED [None]
